FAERS Safety Report 6740142-9 (Version None)
Quarter: 2010Q2

REPORT INFORMATION
  Report Type: 
  Country: None (occurrence: None)
  Receive Date: 20100525
  Receipt Date: 20100517
  Transmission Date: 20101027
  Serious: Yes (Death, Hospitalization)
  Sender: FDA-Public Use
  Company Number: A0774049A

PATIENT
  Age: 69 Year
  Sex: Female

DRUGS (2)
  1. AVANDIA [Suspect]
     Dosage: 4U PER DAY
     Route: 048
     Dates: start: 20050115, end: 20050203
  2. AVANDAMET [Suspect]
     Dates: start: 20050203, end: 20060302

REACTIONS (1)
  - SUDDEN CARDIAC DEATH [None]
